FAERS Safety Report 10068842 (Version 1)
Quarter: 2014Q2

REPORT INFORMATION
  Report Type: Spontaneous
  Country: IT (occurrence: IT)
  Receive Date: 20140409
  Receipt Date: 20140409
  Transmission Date: 20141212
  Serious: Yes (Other)
  Sender: FDA-Public Use
  Company Number: PHHY2014IT040304

PATIENT
  Age: 29 Year
  Sex: Female

DRUGS (12)
  1. METFORMIN [Suspect]
     Indication: HYPERGLYCAEMIA
     Dosage: 1500 MG, QD
     Route: 048
     Dates: start: 20130809
  2. RISPERDAL [Suspect]
     Indication: PSYCHOTIC DISORDER
     Dosage: 8 MG, QD
     Route: 048
     Dates: start: 20100101
  3. LANSOX [Concomitant]
     Dosage: 45 MG, UNK
     Route: 048
  4. TRILAFON [Concomitant]
     Dosage: UNK UKN, UNK
  5. LEPONEX [Concomitant]
     Dosage: UNK UKN, UNK
  6. ENTUMIN [Concomitant]
     Dosage: UNK UKN, UNK
  7. VATRAN [Concomitant]
     Dosage: UNK UKN, UNK
  8. HALCION [Concomitant]
     Dosage: UNK UKN, UNK
  9. TAVOR [Concomitant]
     Dosage: UNK UKN, UNK
  10. MOGADON [Concomitant]
     Dosage: UNK UKN, UNK
  11. FARGANESSE [Concomitant]
     Dosage: UNK UKN, UNK
  12. DIAZEPAM [Concomitant]
     Dosage: UNK UKN, UNK

REACTIONS (2)
  - Mental disorder [Unknown]
  - Drug effect decreased [Unknown]
